FAERS Safety Report 10232182 (Version 1)
Quarter: 2014Q2

REPORT INFORMATION
  Report Type: Spontaneous
  Country: US (occurrence: US)
  Receive Date: 20140612
  Receipt Date: 20140612
  Transmission Date: 20141212
  Serious: No
  Sender: FDA-Public Use
  Company Number: US-BIOGENIDEC-2014BI051529

PATIENT
  Age: 52 Year
  Sex: Female

DRUGS (1)
  1. TECFIDERA [Suspect]
     Indication: MULTIPLE SCLEROSIS
     Route: 048
     Dates: start: 20140317

REACTIONS (6)
  - Acrochordon [Not Recovered/Not Resolved]
  - Skin papilloma [Not Recovered/Not Resolved]
  - Melanocytic naevus [Not Recovered/Not Resolved]
  - Cyst [Not Recovered/Not Resolved]
  - Ingrown hair [Not Recovered/Not Resolved]
  - Rash [Recovered/Resolved]
